FAERS Safety Report 6834644-4 (Version None)
Quarter: 2010Q3

REPORT INFORMATION
  Report Type: 
  Country: None (occurrence: None)
  Receive Date: 20100712
  Receipt Date: 20080817
  Transmission Date: 20110219
  Serious: No
  Sender: FDA-Public Use
  Company Number: US-PFIZER INC-2007026881

PATIENT
  Sex: Female
  Weight: 110.2 kg

DRUGS (9)
  1. CHANTIX [Suspect]
     Indication: SMOKING CESSATION THERAPY
     Route: 048
     Dates: start: 20070326
  2. LITHIUM [Concomitant]
     Route: 048
  3. ZOLOFT [Concomitant]
     Route: 048
  4. XANAX [Concomitant]
     Route: 048
  5. TRAZODONE HYDROCHLORIDE [Concomitant]
     Route: 048
  6. GEODON [Concomitant]
     Route: 048
  7. SPIRONOLACTONE [Concomitant]
     Route: 048
  8. LASIX [Concomitant]
     Route: 048
  9. POTASSIUM [Concomitant]
     Route: 048

REACTIONS (8)
  - ABNORMAL FAECES [None]
  - DYSGEUSIA [None]
  - ERYTHEMA [None]
  - GLOSSODYNIA [None]
  - INCORRECT DOSE ADMINISTERED [None]
  - SKIN CHAPPED [None]
  - TONGUE DISORDER [None]
  - URINE ODOUR ABNORMAL [None]
